FAERS Safety Report 23831603 (Version 3)
Quarter: 2024Q2

REPORT INFORMATION
  Report Type: Spontaneous
  Country: AR (occurrence: AR)
  Receive Date: 20240508
  Receipt Date: 20240607
  Transmission Date: 20240715
  Serious: Yes (Hospitalization)
  Sender: FDA-Public Use
  Company Number: AR-HORIZON THERAPEUTICS-HZN-2024-005252

PATIENT
  Age: 6 Year
  Sex: Female

DRUGS (3)
  1. SODIUM PHENYLBUTYRATE [Suspect]
     Active Substance: SODIUM PHENYLBUTYRATE
     Indication: Ornithine transcarbamoylase deficiency
     Dosage: UNK, REGIMEN#1
     Route: 065
     Dates: start: 202303
  2. SODIUM BENZOATE [Concomitant]
     Active Substance: SODIUM BENZOATE
     Dosage: UNK
     Route: 065
  3. ARGININE [Concomitant]
     Active Substance: ARGININE
     Dosage: UNK
     Route: 065

REACTIONS (3)
  - Hyperammonaemia [Recovered/Resolved]
  - Infection [Recovered/Resolved]
  - Inappropriate schedule of product administration [Unknown]

NARRATIVE: CASE EVENT DATE: 20240401
